FAERS Safety Report 5527501-7 (Version None)
Quarter: 2007Q4

REPORT INFORMATION
  Report Type: 
  Country: None (occurrence: None)
  Receive Date: 20071128
  Receipt Date: 20071126
  Transmission Date: 20080405
  Serious: Yes (Death, Hospitalization, Other)
  Sender: FDA-Public Use
  Company Number: FR-BRISTOL-MYERS SQUIBB COMPANY-13995030

PATIENT
  Age: 83 Year
  Sex: Female

DRUGS (11)
  1. IRBESARTAN [Suspect]
     Dates: end: 20070629
  2. PROTELOS [Suspect]
     Dates: start: 20070101, end: 20070629
  3. DICYNONE [Suspect]
     Dates: end: 20070629
  4. NOCTRAN [Suspect]
     Dates: end: 20070629
  5. BROMAZEPAM [Suspect]
     Dates: end: 20070629
  6. STRUCTUM [Suspect]
     Dates: end: 20070629
  7. SEGLOR [Concomitant]
  8. TANAKAN [Concomitant]
  9. METEOXANE [Concomitant]
  10. ATEPADENE [Concomitant]
  11. TIMOFEROL [Concomitant]

REACTIONS (4)
  - APLASIA [None]
  - DEATH [None]
  - PANCYTOPENIA [None]
  - RENAL FAILURE [None]
